FAERS Safety Report 9483357 (Version 1)
Quarter: 2013Q3

REPORT INFORMATION
  Report Type: Spontaneous
  Country: GB (occurrence: GB)
  Receive Date: 20130828
  Receipt Date: 20130828
  Transmission Date: 20140515
  Serious: Yes (Other)
  Sender: FDA-Public Use
  Company Number: GB-TEVA-427857ISR

PATIENT
  Age: 62 Year
  Sex: Male
  Weight: 58.8 kg

DRUGS (4)
  1. BISOPROLOL [Suspect]
  2. RAMIPRIL [Concomitant]
     Dates: start: 20130131, end: 20130517
  3. FELODIPINE [Concomitant]
     Dates: start: 20130131, end: 20130517
  4. ATORVASTATIN [Concomitant]
     Dates: start: 20130328, end: 20130425

REACTIONS (1)
  - Sedation [Recovering/Resolving]
